FAERS Safety Report 18650849 (Version 1)
Quarter: 2020Q4

REPORT INFORMATION
  Report Type: Spontaneous
  Country: CA (occurrence: CA)
  Receive Date: 20201222
  Receipt Date: 20201222
  Transmission Date: 20210114
  Serious: Yes (Other)
  Sender: FDA-Public Use
  Company Number: CA-JNJFOC-20201226196

PATIENT
  Age: 70 Year
  Sex: Female

DRUGS (8)
  1. TEMAZEPAM. [Concomitant]
     Active Substance: TEMAZEPAM
  2. FLUVOXAMINE [Concomitant]
     Active Substance: FLUVOXAMINE
  3. VITAMIN D [ERGOCALCIFEROL] [Concomitant]
     Active Substance: ERGOCALCIFEROL
  4. THYRONINE [Concomitant]
  5. PROGESTERONE. [Concomitant]
     Active Substance: PROGESTERONE
  6. SPRAVATO [Suspect]
     Active Substance: ESKETAMINE
     Indication: MAJOR DEPRESSION
     Dosage: 3RD DOSE HELD
     Dates: start: 20201203
  7. ESTRADIOL. [Concomitant]
     Active Substance: ESTRADIOL
  8. MULTIPLE VITAMIN [Concomitant]
     Active Substance: VITAMINS

REACTIONS (1)
  - Blood pressure systolic increased [Unknown]

NARRATIVE: CASE EVENT DATE: 20201210
